FAERS Safety Report 15153751 (Version 3)
Quarter: 2018Q4

REPORT INFORMATION
  Report Type: Spontaneous
  Country: US (occurrence: US)
  Receive Date: 20180717
  Receipt Date: 20181203
  Transmission Date: 20190204
  Serious: No
  Sender: FDA-Public Use
  Company Number: US-SA-2018SA191542

PATIENT
  Weight: 31 kg

DRUGS (12)
  1. PRILOCAINE [Concomitant]
     Active Substance: PRILOCAINE
     Indication: FLUSHING
     Dosage: 2.5 %
     Route: 061
     Dates: start: 20180607
  2. EPINEPHRINE. [Concomitant]
     Active Substance: EPINEPHRINE
     Indication: ANAPHYLACTIC REACTION
     Dosage: 0.15 MG, PRN
     Route: 030
     Dates: start: 20180607
  3. CIPRODEX [CIPROFLOXACIN HYDROCHLORIDE] [Concomitant]
     Dosage: 2 DROP, BID
     Dates: start: 20180625
  4. LIDOCAINE. [Concomitant]
     Active Substance: LIDOCAINE
     Indication: FLUSHING
     Dosage: 2.5 %
     Route: 061
     Dates: start: 20180607
  5. ENALAPRIL [Concomitant]
     Active Substance: ENALAPRIL
     Dosage: 1.5 ML, BID
     Route: 048
     Dates: start: 20180124
  6. ALDURAZYME [Suspect]
     Active Substance: LARONIDASE
     Indication: MUCOPOLYSACCHARIDOSIS
     Dosage: 8.75 MG, QW
     Route: 041
     Dates: start: 20180125
  7. NORMAL SALINE [Concomitant]
     Active Substance: SODIUM CHLORIDE
     Indication: PREMEDICATION
     Dosage: 0.9 %
     Route: 042
     Dates: start: 20180607
  8. SODIUM CHLORIDE. [Concomitant]
     Active Substance: SODIUM CHLORIDE
     Indication: FLUSHING
     Dosage: 0.9 %
     Route: 042
     Dates: start: 20180607
  9. ACETAMINOPHEN. [Concomitant]
     Active Substance: ACETAMINOPHEN
     Indication: PREMEDICATION
     Dosage: 150 MG
     Route: 048
     Dates: start: 20180607
  10. DIPHENHYDRAMINE. [Concomitant]
     Active Substance: DIPHENHYDRAMINE
     Indication: PREMEDICATION
     Dosage: 12.5 MG, PRN
     Route: 048
     Dates: start: 20180607
  11. HEPARIN [Concomitant]
     Active Substance: HEPARIN SODIUM
     Indication: FLUSHING
     Dosage: 100 ML
     Route: 042
     Dates: start: 20180607
  12. NORMAL SALINE [Concomitant]
     Active Substance: SODIUM CHLORIDE
     Indication: FLUSHING

REACTIONS (1)
  - Medical device site pustule [Unknown]
